FAERS Safety Report 16460111 (Version 2)
Quarter: 2019Q3

REPORT INFORMATION
  Report Type: Report from Study
  Country: DE (occurrence: DE)
  Receive Date: 20190620
  Receipt Date: 20190806
  Transmission Date: 20191004
  Serious: Yes (Hospitalization, Other)
  Sender: FDA-Public Use
  Company Number: DE-TAKEDA-2019TUS038854

PATIENT
  Age: 33 Year
  Sex: Female
  Weight: 62 kg

DRUGS (9)
  1. DECORTIN H [Concomitant]
     Active Substance: PREDNISOLONE
     Indication: CROHN^S DISEASE
     Dosage: 15 MILLIGRAM, QD
     Dates: start: 20190123, end: 20190217
  2. IDEOS [Concomitant]
     Active Substance: CALCIUM CARBONATE\CHOLECALCIFEROL
     Indication: PROPHYLAXIS
     Dosage: UNK UNK, BID
     Dates: start: 20181201
  3. CLOPIDOGREL [Concomitant]
     Active Substance: CLOPIDOGREL BISULFATE
     Indication: THROMBOSIS PROPHYLAXIS
     Dosage: 75 MILLIGRAM, QD
     Dates: start: 20180719
  4. CLEXANE [Concomitant]
     Active Substance: ENOXAPARIN SODIUM
     Indication: THROMBOSIS PROPHYLAXIS
     Dosage: 0.8 MILLILITER, BID
     Dates: start: 20180719
  5. FOLIC ACID. [Concomitant]
     Active Substance: FOLIC ACID
     Indication: PROPHYLAXIS
     Dosage: 5 MILLIGRAM, 1/WEEK
     Dates: start: 20180620, end: 20190503
  6. VEDOLIZUMAB [Suspect]
     Active Substance: VEDOLIZUMAB
     Indication: CROHN^S DISEASE
     Dosage: 300 MILLIGRAM
     Route: 065
     Dates: start: 20181113, end: 20181221
  7. KEPINOL [Concomitant]
     Active Substance: SULFAMETHOXAZOLE\TRIMETHOPRIM
     Indication: PROPHYLAXIS
     Dosage: UNK
     Dates: start: 20181128
  8. METHOTREXATE. [Concomitant]
     Active Substance: METHOTREXATE
     Indication: CROHN^S DISEASE
     Dosage: 25 MILLIGRAM, 1/WEEK
     Dates: start: 20180619, end: 20190503
  9. SELENASE                           /00075003/ [Concomitant]
     Indication: PROPHYLAXIS
     Dosage: 50 MICROGRAM, QD
     Dates: start: 20181128, end: 20190126

REACTIONS (2)
  - Abscess intestinal [Recovered/Resolved]
  - Mesenteric abscess [Recovered/Resolved]

NARRATIVE: CASE EVENT DATE: 20190121
